FAERS Safety Report 13014655 (Version 4)
Quarter: 2017Q4

REPORT INFORMATION
  Report Type: Spontaneous
  Country: US (occurrence: US)
  Receive Date: 20161209
  Receipt Date: 20171214
  Transmission Date: 20180320
  Serious: Yes (Other)
  Sender: FDA-Public Use
  Company Number: US-PFIZER INC-2016572558

PATIENT
  Age: 69 Year
  Sex: Female
  Weight: 68 kg

DRUGS (10)
  1. OMEPRAZOLE. [Concomitant]
     Active Substance: OMEPRAZOLE
     Indication: GASTROOESOPHAGEAL REFLUX DISEASE
     Dosage: 20 MG, DAILY
     Route: 048
     Dates: start: 2012
  2. FLUOXETINE [Concomitant]
     Active Substance: FLUOXETINE HYDROCHLORIDE
     Indication: REYNOLD^S SYNDROME
     Dosage: 20 MG, DAILY (IN THE MORNING)
     Route: 048
     Dates: start: 2012
  3. ASPIRIN. [Concomitant]
     Active Substance: ASPIRIN
     Indication: CARDIOVASCULAR DISORDER
     Dosage: 81 MG, 1X/DAY
     Route: 048
  4. TRENTAL [Concomitant]
     Active Substance: PENTOXIFYLLINE
     Dosage: 400 MG, 3X/DAY
     Dates: start: 201701
  5. SIMVASTATIN. [Concomitant]
     Active Substance: SIMVASTATIN
     Indication: BLOOD CHOLESTEROL ABNORMAL
     Dosage: 20 MG, 1X/DAY
     Route: 048
     Dates: start: 2010
  6. GABAPENTIN. [Concomitant]
     Active Substance: GABAPENTIN
     Dosage: 300 MG, 1X/DAY (NIGHT)
     Dates: start: 2015
  7. REVATIO [Suspect]
     Active Substance: SILDENAFIL CITRATE
     Indication: SCLERODERMA
  8. AMLODIPINE [Concomitant]
     Active Substance: AMLODIPINE BESYLATE
     Indication: HYPERTENSION
     Dosage: 2.5 MG, ONE IN MORNING AND TWO AT NIGHT
     Route: 048
     Dates: start: 2013, end: 201701
  9. REVATIO [Suspect]
     Active Substance: SILDENAFIL CITRATE
     Indication: PULMONARY HYPERTENSION
     Dosage: 20 MG, 3X/DAY
     Route: 048
     Dates: start: 201209
  10. LOSARTAN. [Concomitant]
     Active Substance: LOSARTAN
     Indication: PULMONARY HYPERTENSION
     Dosage: 100 MG, DAILY
     Route: 048
     Dates: start: 2012

REACTIONS (4)
  - Foot fracture [Recovering/Resolving]
  - Nasopharyngitis [Recovered/Resolved]
  - Rhinorrhoea [Unknown]
  - Laryngitis [Recovering/Resolving]

NARRATIVE: CASE EVENT DATE: 201612
